FAERS Safety Report 12456900 (Version 1)
Quarter: 2016Q2

REPORT INFORMATION
  Report Type: Spontaneous
  Country: AU (occurrence: AU)
  Receive Date: 20160610
  Receipt Date: 20160610
  Transmission Date: 20160815
  Serious: Yes (Death, Hospitalization, Other)
  Sender: FDA-Public Use
  Company Number: AU-BAUSCH-BL-2016-013690

PATIENT
  Age: 69 Year
  Sex: Male

DRUGS (14)
  1. ACYCLOVIR. [Suspect]
     Active Substance: ACYCLOVIR
     Indication: PNEUMONIA VIRAL
     Route: 065
  2. CISATRACURIUM. [Suspect]
     Active Substance: CISATRACURIUM
     Indication: CONDITION AGGRAVATED
  3. ESOMEPRAZOLE [Concomitant]
     Active Substance: ESOMEPRAZOLE
     Indication: PROPHYLAXIS
     Route: 065
  4. PREDNISOLONE. [Suspect]
     Active Substance: PREDNISOLONE
     Indication: PNEUMONITIS
     Route: 065
  5. ANIDULAFUNGIN [Suspect]
     Active Substance: ANIDULAFUNGIN
     Indication: ANTIFUNGAL PROPHYLAXIS
     Route: 065
  6. ENOXAPARIN SODIUM. [Suspect]
     Active Substance: ENOXAPARIN SODIUM
     Indication: THROMBOSIS PROPHYLAXIS
     Route: 065
  7. PIPERACILLIN AND TAZOBACTAM [Suspect]
     Active Substance: PIPERACILLIN SODIUM\TAZOBACTAM SODIUM
     Indication: PROPHYLAXIS
     Route: 065
  8. METHYLPREDNISOLONE. [Suspect]
     Active Substance: METHYLPREDNISOLONE
     Indication: INTERSTITIAL LUNG DISEASE
     Route: 042
  9. AZITHROMYCIN ANHYDROUS. [Suspect]
     Active Substance: AZITHROMYCIN ANHYDROUS
     Indication: PROPHYLAXIS
     Route: 065
  10. IMATINIB [Suspect]
     Active Substance: IMATINIB
     Indication: INTERSTITIAL LUNG DISEASE
     Route: 065
  11. SALBUTAMOL [Suspect]
     Active Substance: ALBUTEROL
     Indication: WHEEZING
     Route: 065
  12. HYDROCORTISONE. [Concomitant]
     Active Substance: HYDROCORTISONE
     Indication: INTERSTITIAL LUNG DISEASE
     Route: 065
  13. SULFAMETHOXAZOLE W/ TRIMETHOPRIM [Suspect]
     Active Substance: SULFAMETHOXAZOLE\TRIMETHOPRIM
     Indication: ANTIFUNGAL PROPHYLAXIS
     Route: 065
  14. CISATRACURIUM. [Suspect]
     Active Substance: CISATRACURIUM
     Indication: ACUTE RESPIRATORY DISTRESS SYNDROME
     Route: 065

REACTIONS (8)
  - Drug ineffective [Fatal]
  - Acute respiratory distress syndrome [Fatal]
  - Respiratory gas exchange disorder [Fatal]
  - Hypercapnia [Fatal]
  - Melaena [Fatal]
  - Haematemesis [Fatal]
  - Condition aggravated [Fatal]
  - Thrombocytopenia [Fatal]
